FAERS Safety Report 11583985 (Version 1)
Quarter: 2015Q4

REPORT INFORMATION
  Report Type: Spontaneous
  Country: US (occurrence: US)
  Receive Date: 20151001
  Receipt Date: 20151001
  Transmission Date: 20160304
  Serious: Yes (Hospitalization)
  Sender: FDA-Public Use
  Company Number: US-ROCHE-603074

PATIENT
  Age: 52 Year
  Sex: Male

DRUGS (8)
  1. BUSPAR [Concomitant]
     Active Substance: BUSPIRONE HYDROCHLORIDE
     Route: 065
  2. TALWIN [Concomitant]
     Active Substance: PENTAZOCINE LACTATE
     Route: 065
  3. ROBAXIN [Concomitant]
     Active Substance: METHOCARBAMOL
     Route: 065
  4. PEGASYS [Suspect]
     Active Substance: PEGINTERFERON ALFA-2A
     Indication: HEPATITIS C
     Dosage: FORM: PFS
     Route: 065
     Dates: start: 20081031, end: 20090126
  5. WELLBUTRIN [Concomitant]
     Active Substance: BUPROPION HYDROCHLORIDE
     Route: 065
  6. RIBAVIRIN. [Suspect]
     Active Substance: RIBAVIRIN
     Indication: HEPATITIS C
     Dosage: DIVIDED DOSES
     Route: 065
     Dates: start: 20081031, end: 20090126
  7. NEXIUM [Concomitant]
     Active Substance: ESOMEPRAZOLE MAGNESIUM
     Route: 065
  8. LIDOCAINE. [Concomitant]
     Active Substance: LIDOCAINE
     Dosage: LIDOCAINE MOUTHWASH
     Route: 065

REACTIONS (10)
  - Staphylococcal infection [Unknown]
  - Fatigue [Unknown]
  - Decreased appetite [Unknown]
  - Cervical vertebral fracture [Unknown]
  - Blood count abnormal [Unknown]
  - Restlessness [Unknown]
  - Dyspnoea [Unknown]
  - Haemorrhage [Unknown]
  - Kidney infection [Unknown]
  - Road traffic accident [Unknown]

NARRATIVE: CASE EVENT DATE: 20081201
